FAERS Safety Report 20709433 (Version 1)
Quarter: 2022Q2

REPORT INFORMATION
  Report Type: Spontaneous
  Country: US (occurrence: None)
  Receive Date: 20220413
  Receipt Date: 20220413
  Transmission Date: 20220720
  Serious: Yes (Other)
  Sender: FDA-Public Use
  Company Number: None

PATIENT
  Age: 62 Year
  Sex: Female
  Weight: 60.75 kg

DRUGS (1)
  1. EVENITY [Suspect]
     Active Substance: ROMOSOZUMAB-AQQG
     Indication: Osteoporosis postmenopausal
     Dosage: OTHER FREQUENCY : ONCE A MONTH;?
     Route: 030

REACTIONS (3)
  - Injection site mass [None]
  - Injection site erythema [None]
  - Pruritus [None]

NARRATIVE: CASE EVENT DATE: 20220117
